FAERS Safety Report 10151574 (Version 1)
Quarter: 2014Q2

REPORT INFORMATION
  Report Type: Spontaneous
  Country: NL (occurrence: NL)
  Receive Date: 20140505
  Receipt Date: 20140505
  Transmission Date: 20141212
  Serious: Yes (Hospitalization)
  Sender: FDA-Public Use
  Company Number: NL-AMGEN-NLDSP2010013979

PATIENT
  Age: 74 Year
  Sex: Female

DRUGS (2)
  1. ARANESP [Suspect]
     Indication: ANAEMIA
     Dosage: 500 MUG, Q3WK
     Route: 058
     Dates: start: 20100118, end: 20101110
  2. NEULASTA [Suspect]
     Indication: PROPHYLAXIS
     Dosage: 6 MG, Q3WK
     Route: 058
     Dates: start: 20100407, end: 20101110

REACTIONS (1)
  - Hospitalisation [Unknown]
